FAERS Safety Report 6045564-X (Version None)
Quarter: 2009Q1

REPORT INFORMATION
  Report Type: 
  Country: None (occurrence: None)
  Receive Date: 20090121
  Receipt Date: 20090108
  Transmission Date: 20090719
  Serious: Yes (Other)
  Sender: FDA-Public Use
  Company Number: US-WATSON-2009-00095

PATIENT
  Age: 56 Year
  Sex: Male

DRUGS (9)
  1. ANDRODERM [Suspect]
     Indication: HYPOGONADISM MALE
     Dosage: 5 MG, DAILY
     Route: 062
     Dates: start: 20081001
  2. ANDRODERM [Suspect]
     Dosage: 5 MG, DAILY
     Route: 062
     Dates: start: 20080501, end: 20080701
  3. METFORMIN [Concomitant]
     Indication: DIABETES MELLITUS
     Dosage: UNK
  4. GLYBURIDE [Concomitant]
     Indication: DIABETES MELLITUS
     Dosage: UNK
  5. GABAPENTIN [Concomitant]
     Indication: PAIN IN EXTREMITY
     Dosage: UNK
  6. GLAUCOMA EYEDROPS [Concomitant]
     Indication: GLAUCOMA
     Dosage: UNK
  7. LIPITOR [Concomitant]
     Indication: BLOOD CHOLESTEROL INCREASED
     Dosage: UNK
  8. DIOVAN                             /01319601/ [Concomitant]
     Indication: HYPERTENSION
     Dosage: UNK
  9. AMLODIPINE [Concomitant]
     Indication: HYPERTENSION
     Dosage: UNK

REACTIONS (8)
  - APPLICATION SITE ERYTHEMA [None]
  - APPLICATION SITE INDURATION [None]
  - APPLICATION SITE IRRITATION [None]
  - BACK PAIN [None]
  - BONE NEOPLASM [None]
  - HEPATIC FUNCTION ABNORMAL [None]
  - PSORIASIS [None]
  - RENAL IMPAIRMENT [None]
